FAERS Safety Report 6745132-8 (Version None)
Quarter: 2010Q2

REPORT INFORMATION
  Report Type: 
  Country: None (occurrence: None)
  Receive Date: 20100527
  Receipt Date: 20100517
  Transmission Date: 20101027
  Serious: Yes (Other)
  Sender: FDA-Public Use
  Company Number: FR-GENENTECH-302110

PATIENT

DRUGS (7)
  1. RITUXIMAB [Suspect]
     Indication: NEPHROTIC SYNDROME
     Dosage: 375 MG/M2, UNK
     Route: 042
  2. MYCOPHENOLATE MOFETIL [Suspect]
     Indication: IMMUNOSUPPRESSION
     Dosage: UNK
     Route: 065
  3. PREDNISONE TAB [Suspect]
     Indication: IMMUNOSUPPRESSION
     Dosage: UNK
     Route: 048
  4. CYCLOSPORINE [Suspect]
     Indication: IMMUNOSUPPRESSION
     Dosage: UNK
     Route: 065
  5. DEXCHLORPHENIRAMINE MALEATE [Concomitant]
     Indication: DRUG USE FOR UNKNOWN INDICATION
     Dosage: UNK
     Route: 042
  6. METHYLPREDNISOLONE [Concomitant]
     Indication: DRUG USE FOR UNKNOWN INDICATION
     Dosage: 0.5 MG/KG, UNK
     Route: 042
  7. COTRIM [Concomitant]
     Indication: ANTIFUNGAL PROPHYLAXIS
     Dosage: 20 MG/KG, UNK

REACTIONS (1)
  - VENOUS THROMBOSIS [None]
